FAERS Safety Report 8274675-3 (Version None)
Quarter: 2012Q2

REPORT INFORMATION
  Report Type: 
  Country: None (occurrence: None)
  Receive Date: 20120411
  Receipt Date: 20120406
  Transmission Date: 20120825
  Serious: Yes (Hospitalization)
  Sender: FDA-Public Use
  Company Number: JP-GLAXOSMITHKLINE-B0794275A

PATIENT
  Age: 74 Year
  Sex: Female

DRUGS (3)
  1. REQUIP [Suspect]
     Indication: PARKINSON'S DISEASE
     Dosage: 12MG PER DAY
     Route: 048
     Dates: end: 20120301
  2. MENEST [Concomitant]
     Indication: PARKINSON'S DISEASE
     Route: 048
  3. SELEGILINE HCL [Concomitant]
     Indication: PARKINSON'S DISEASE
     Route: 048

REACTIONS (2)
  - MUSCULAR WEAKNESS [None]
  - CAMPTOCORMIA [None]
